FAERS Safety Report 4577453-1 (Version None)
Quarter: 2005Q1

REPORT INFORMATION
  Report Type: 
  Country: None (occurrence: None)
  Receive Date: 20050208
  Receipt Date: 20050126
  Transmission Date: 20050727
  Serious: Yes (Hospitalization, Other)
  Sender: FDA-Public Use
  Company Number: 2004042683

PATIENT
  Age: 72 Year
  Sex: Male
  Weight: 52 kg

DRUGS (8)
  1. AZITHROMYCIN [Suspect]
     Indication: INTERSTITIAL LUNG DISEASE
     Dosage: 500 MG (500 MG, 1 IN 1 D), ORAL
     Route: 048
     Dates: start: 20030530, end: 20030601
  2. CEFEPIME (CEFEPIME) [Suspect]
     Indication: INTERSTITIAL LUNG DISEASE
     Dosage: 1 GRAM (1 GRAM, 1 IN 1 D), INTRAVENOUS
     Route: 042
     Dates: start: 20030530, end: 20030601
  3. PAZUFLOXACIN (PAZUFLOXACIN) [Suspect]
     Indication: INTERSTITIAL LUNG DISEASE
     Dosage: 300 MG (300 MG, 1 IN 1 D), INTRAVENOUS
     Route: 042
     Dates: start: 20030602, end: 20030602
  4. CEFTRIAXONE [Suspect]
     Indication: INTERSTITIAL LUNG DISEASE
     Dosage: 4 GRAM (2 GRAM, 2 IN 1 D), INTRAVENOUS
     Route: 042
     Dates: start: 20030602, end: 20040604
  5. MINOCYCLINE HYDROCHLORIDE [Suspect]
     Indication: INTERSTITIAL LUNG DISEASE
     Dosage: 200 MG (100 MG, 2 IN 1D), INTRAVENOUS
     Route: 042
     Dates: start: 20030605, end: 20030609
  6. AMLODIPINE BESYLATE [Concomitant]
  7. ATORVASTATIN CALCIUM [Concomitant]
  8. TULOBUTEROL (TULOBUTEROL) [Concomitant]

REACTIONS (17)
  - ANAEMIA HAEMOLYTIC AUTOIMMUNE [None]
  - ANTI-ERYTHROPOIETIN ANTIBODY POSITIVE [None]
  - BLOOD BILIRUBIN UNCONJUGATED INCREASED [None]
  - BLOOD LACTATE DEHYDROGENASE INCREASED [None]
  - CHROMATURIA [None]
  - CONDITION AGGRAVATED [None]
  - CYANOSIS [None]
  - DISSEMINATED INTRAVASCULAR COAGULATION [None]
  - EOSINOPHIL COUNT INCREASED [None]
  - FIBRIN D DIMER INCREASED [None]
  - LYMPHOCYTE COUNT DECREASED [None]
  - NEUTROPHIL COUNT INCREASED [None]
  - PALLOR [None]
  - PALPITATIONS [None]
  - PLATELET COUNT INCREASED [None]
  - PNEUMONIA [None]
  - PROTHROMBIN LEVEL DECREASED [None]
